APPROVED DRUG PRODUCT: DICLOFENAC SODIUM
Active Ingredient: DICLOFENAC SODIUM
Strength: 1%
Dosage Form/Route: GEL;TOPICAL
Application: A209903 | Product #001
Applicant: CIPLA LTD
Approved: Aug 3, 2018 | RLD: No | RS: No | Type: OTC